FAERS Safety Report 8464801-5 (Version None)
Quarter: 2012Q2

REPORT INFORMATION
  Report Type: 
  Country: None (occurrence: None)
  Receive Date: 20120626
  Receipt Date: 20120620
  Transmission Date: 20120825
  Serious: Yes (Hospitalization, Other)
  Sender: FDA-Public Use
  Company Number: BR-US-EMD SERONO, INC.-7022393

PATIENT
  Sex: Female

DRUGS (10)
  1. GABAPENTIN [Concomitant]
  2. OMEPRAZOLE [Concomitant]
  3. REBIF [Suspect]
     Indication: RELAPSING-REMITTING MULTIPLE SCLEROSIS
     Route: 058
     Dates: start: 20100810
  4. HYDROCORTISONE ACETATE [Concomitant]
  5. ACETAMINOPHEN [Concomitant]
  6. PROPRANOLOL [Concomitant]
  7. DIGESAN [Concomitant]
  8. CITALOPRAM HYDROBROMIDE [Concomitant]
  9. TAMISA [Concomitant]
     Indication: CONTRACEPTION
  10. PANTOPRAZOLE [Concomitant]

REACTIONS (7)
  - MUSCULAR WEAKNESS [None]
  - BONE FISSURE [None]
  - INJECTION SITE HAEMATOMA [None]
  - PAIN [None]
  - CHILLS [None]
  - MULTIPLE SCLEROSIS RELAPSE [None]
  - INJECTION SITE ERYTHEMA [None]
